FAERS Safety Report 11902298 (Version 4)
Quarter: 2016Q1

REPORT INFORMATION
  Report Type: Report from Study
  Country: US (occurrence: US)
  Receive Date: 20160108
  Receipt Date: 20160111
  Transmission Date: 20160526
  Serious: No
  Sender: FDA-Public Use
  Company Number: US-ABBVIE-15P-163-1452648-00

PATIENT
  Age: 61 Year
  Sex: Male

DRUGS (2)
  1. VIEKIRA PAK [Suspect]
     Active Substance: DASABUVIR\OMBITASVIR\PARITAPREVIR\RITONAVIR
     Indication: HEPATITIS C
     Dosage: TAKE VIEKIRA PER MANUFACTURERS DIRECTIONS IN THE AM AND PM
     Route: 048
     Dates: start: 20150801, end: 20150818
  2. RIBAVIRIN. [Concomitant]
     Active Substance: RIBAVIRIN
     Indication: HEPATITIS C
     Route: 048

REACTIONS (12)
  - Pyrexia [Recovering/Resolving]
  - Dehydration [Recovering/Resolving]
  - Hyperhidrosis [Recovering/Resolving]
  - Faeces discoloured [Recovering/Resolving]
  - Insomnia [Recovering/Resolving]
  - Abdominal pain upper [Recovering/Resolving]
  - Constipation [Recovering/Resolving]
  - Cold sweat [Recovering/Resolving]
  - Impaired work ability [Recovering/Resolving]
  - Flatulence [Recovering/Resolving]
  - Weight decreased [Recovering/Resolving]
  - Food intolerance [Recovering/Resolving]

NARRATIVE: CASE EVENT DATE: 20150817
